FAERS Safety Report 12956929 (Version 1)
Quarter: 2016Q4

REPORT INFORMATION
  Report Type: Spontaneous
  Country: US (occurrence: US)
  Receive Date: 20161118
  Receipt Date: 20161118
  Transmission Date: 20170207
  Serious: Yes (Other)
  Sender: FDA-Public Use
  Company Number: US-SA-2016SA210416

PATIENT
  Age: 66 Year
  Sex: Male

DRUGS (3)
  1. PRALUENT [Suspect]
     Active Substance: ALIROCUMAB
     Indication: BLOOD CHOLESTEROL
     Route: 058
     Dates: start: 2015
  2. ALIROCUMAB PREFILLED PEN [Concomitant]
     Active Substance: ALIROCUMAB
     Dates: start: 2015
  3. LIVALO [Concomitant]
     Active Substance: PITAVASTATIN CALCIUM
     Dosage: COULD NOT TOLERATE IT

REACTIONS (1)
  - Polymyalgia rheumatica [Unknown]

NARRATIVE: CASE EVENT DATE: 201611
